FAERS Safety Report 16181887 (Version 2)
Quarter: 2019Q2

REPORT INFORMATION
  Report Type: Spontaneous
  Country: US (occurrence: US)
  Receive Date: 20190410
  Receipt Date: 20190506
  Transmission Date: 20190711
  Serious: No
  Sender: FDA-Public Use
  Company Number: US-009507513-1904USA002904

PATIENT
  Age: 20 Year
  Sex: Female

DRUGS (1)
  1. NEXPLANON [Suspect]
     Active Substance: ETONOGESTREL
     Indication: CONTRACEPTION
     Dosage: 1 ROD EVERY 3 YEARS
     Route: 059
     Dates: start: 20190313

REACTIONS (8)
  - Device difficult to use [Recovered/Resolved]
  - Needle issue [Recovered/Resolved]
  - Soft tissue foreign body [Recovered/Resolved]
  - Implant site erythema [Recovered/Resolved]
  - Implant site pain [Recovered/Resolved]
  - Implant site pain [Recovered/Resolved]
  - Discomfort [Recovered/Resolved]
  - Keloid scar [Unknown]

NARRATIVE: CASE EVENT DATE: 2019
